FAERS Safety Report 17043058 (Version 1)
Quarter: 2019Q4

REPORT INFORMATION
  Report Type: Other
  Country: US (occurrence: US)
  Receive Date: 20191118
  Receipt Date: 20191118
  Transmission Date: 20200122
  Serious: Yes (Hospitalization, Other)
  Sender: FDA-Public Use
  Company Number: US-NAVINTA LLC-000079

PATIENT
  Age: 82 Year
  Sex: Female

DRUGS (1)
  1. HYDRALAZINE [Suspect]
     Active Substance: HYDRALAZINE HYDROCHLORIDE
     Indication: PRODUCT USED FOR UNKNOWN INDICATION
     Route: 042

REACTIONS (6)
  - Mental status changes [Unknown]
  - Optic ischaemic neuropathy [Recovered/Resolved with Sequelae]
  - Confusional state [Unknown]
  - Hypoxia [Unknown]
  - Blindness [Recovered/Resolved with Sequelae]
  - Blood pressure decreased [Unknown]
